FAERS Safety Report 9652013 (Version 1)
Quarter: 2013Q4

REPORT INFORMATION
  Report Type: Report from Study
  Country: KR (occurrence: KR)
  Receive Date: 20131029
  Receipt Date: 20131029
  Transmission Date: 20140711
  Serious: Yes (Hospitalization)
  Sender: FDA-Public Use
  Company Number: KR-009507513-1310KOR011804

PATIENT
  Age: 32 Year
  Sex: Male
  Weight: 54.1 kg

DRUGS (9)
  1. RALTEGRAVIR POTASSIUM [Suspect]
     Indication: HIV INFECTION
     Dosage: 400 MG, BID
     Route: 048
     Dates: start: 20111216, end: 20120130
  2. RALTEGRAVIR POTASSIUM [Suspect]
     Dosage: 400 MG, BID
     Route: 048
     Dates: start: 20120323
  3. ALPRAM [Concomitant]
     Indication: DEPRESSION
     Dosage: 1 TABLET
     Route: 048
     Dates: start: 20111216, end: 20120126
  4. LEXAPRO [Concomitant]
     Indication: DEPRESSION
     Dosage: 1 TABLET
     Route: 048
     Dates: start: 20111216, end: 20120126
  5. TAMBUTOL [Concomitant]
     Indication: PULMONARY TUBERCULOSIS
     Dosage: 3 TABLETS
     Route: 048
     Dates: start: 20111216, end: 20121202
  6. YUHANZID [Concomitant]
     Indication: PULMONARY TUBERCULOSIS
     Dosage: 3 TABLETS
     Route: 048
     Dates: start: 20111216, end: 20121202
  7. PYRAZINAMIDE [Concomitant]
     Indication: PULMONARY TUBERCULOSIS
     Dosage: 3 TABLETS
     Route: 048
     Dates: start: 20111216, end: 20121202
  8. PYRIDOXINE HYDROCHLORIDE [Concomitant]
     Indication: PULMONARY TUBERCULOSIS
     Dosage: 1 TABLET
     Route: 048
     Dates: start: 20111216, end: 20121202
  9. MYCOBUTIN [Concomitant]
     Indication: PULMONARY TUBERCULOSIS
     Dosage: 2 CAPSULES
     Route: 048
     Dates: start: 20111216, end: 20121202

REACTIONS (1)
  - Myocarditis [Recovered/Resolved]
